FAERS Safety Report 25600018 (Version 1)
Quarter: 2025Q3

REPORT INFORMATION
  Report Type: Spontaneous
  Country: GB (occurrence: GB)
  Receive Date: 20250724
  Receipt Date: 20250724
  Transmission Date: 20251020
  Serious: No
  Sender: ALKEM
  Company Number: GB-ALKEM LABORATORIES LIMITED-GB-ALKEM-2024-22127

PATIENT

DRUGS (1)
  1. LAMOTRIGINE [Suspect]
     Active Substance: LAMOTRIGINE
     Indication: Product used for unknown indication
     Route: 065

REACTIONS (7)
  - Ataxia [Unknown]
  - Nausea [Unknown]
  - Nystagmus [Unknown]
  - Somnolence [Unknown]
  - Vomiting [Unknown]
  - Vision blurred [Unknown]
  - Overdose [Unknown]
